FAERS Safety Report 16074893 (Version 2)
Quarter: 2019Q2

REPORT INFORMATION
  Report Type: Spontaneous
  Country: US (occurrence: US)
  Receive Date: 20190314
  Receipt Date: 20190516
  Transmission Date: 20190711
  Serious: Yes (Other)
  Sender: FDA-Public Use
  Company Number: US-BIOGEN-2019BI00710852

PATIENT

DRUGS (1)
  1. TYSABRI [Suspect]
     Active Substance: NATALIZUMAB
     Indication: HEPATITIS ACUTE
     Dosage: INFUSED OVER 1 HOUR
     Route: 042
     Dates: start: 20180828, end: 20180925

REACTIONS (2)
  - Hepatitis [Unknown]
  - Off label use [Unknown]
